FAERS Safety Report 18583602 (Version 1)
Quarter: 2020Q4

REPORT INFORMATION
  Report Type: Other
  Country: CA (occurrence: CA)
  Receive Date: 20201207
  Receipt Date: 20201207
  Transmission Date: 20210114
  Serious: Yes (Other)
  Sender: FDA-Public Use
  Company Number: CA-APOTEX-2020AP022959

PATIENT
  Age: 68 Year
  Sex: Female

DRUGS (5)
  1. IMATINIB. [Suspect]
     Active Substance: IMATINIB MESYLATE
     Indication: CHRONIC MYELOID LEUKAEMIA
     Dosage: 400 MILLIGRAM, QD
     Route: 048
  2. COVERSYL [PERINDOPRIL ERBUMINE] [Concomitant]
     Active Substance: PERINDOPRIL ERBUMINE
     Indication: BLOOD PRESSURE MEASUREMENT
     Dosage: UNK
     Route: 065
  3. LIPITOR [Suspect]
     Active Substance: ATORVASTATIN CALCIUM
     Indication: HYPOTHYROIDISM
     Dosage: UNK
     Route: 065
  4. LIPITOR [Suspect]
     Active Substance: ATORVASTATIN CALCIUM
     Indication: HYPERTENSION
  5. METFORMIN HYDROCHLORIDE;SITAGLIPTIN PHOSPHATE MONOHYDRATE [Suspect]
     Active Substance: METFORMIN HYDROCHLORIDE\SITAGLIPTIN PHOSPHATE
     Indication: DIABETES MELLITUS
     Dosage: UNK
     Route: 065

REACTIONS (24)
  - Drug interaction [Recovered/Resolved]
  - Red blood cell count decreased [Recovered/Resolved]
  - Second primary malignancy [Recovered/Resolved]
  - Haemoglobin decreased [Recovered/Resolved]
  - Nausea [Recovered/Resolved]
  - Blood cholesterol increased [Recovered/Resolved]
  - Epistaxis [Recovered/Resolved]
  - Red blood cell count increased [Recovered/Resolved]
  - Muscle spasms [Recovered/Resolved]
  - Haematemesis [Recovered/Resolved]
  - Colon adenoma [Recovered/Resolved]
  - Diabetes mellitus [Recovered/Resolved]
  - Nasopharyngitis [Recovered/Resolved]
  - Anaemia [Recovered/Resolved]
  - Large intestine polyp [Recovered/Resolved]
  - Limb discomfort [Recovered/Resolved]
  - Road traffic accident [Recovered/Resolved]
  - Thyroid disorder [Recovered/Resolved]
  - Renal failure [Recovered/Resolved]
  - Anxiety [Recovered/Resolved]
  - Weight decreased [Recovered/Resolved]
  - Nervousness [Recovered/Resolved]
  - Adenocarcinoma of colon [Recovered/Resolved]
  - Malaise [Recovered/Resolved]
